FAERS Safety Report 9607268 (Version 1)
Quarter: 2013Q4

REPORT INFORMATION
  Report Type: Spontaneous
  Country: US (occurrence: US)
  Receive Date: 20131009
  Receipt Date: 20131009
  Transmission Date: 20140711
  Serious: No
  Sender: FDA-Public Use
  Company Number: US-009507513-1310USA003991

PATIENT
  Age: 19 Year
  Sex: Female
  Weight: 51.7 kg

DRUGS (2)
  1. IMPLANON [Suspect]
     Indication: CONTRACEPTION
     Dosage: EVERY 3 YEARS, 1 ROD
     Route: 059
     Dates: start: 20101213
  2. IMPLANON [Suspect]
     Indication: MUSCLE SPASMS

REACTIONS (4)
  - Malaise [Not Recovered/Not Resolved]
  - Menstruation irregular [Not Recovered/Not Resolved]
  - Weight decreased [Not Recovered/Not Resolved]
  - Hot flush [Not Recovered/Not Resolved]
